FAERS Safety Report 16181779 (Version 2)
Quarter: 2019Q2

REPORT INFORMATION
  Report Type: Report from Study
  Country: BR (occurrence: BR)
  Receive Date: 20190410
  Receipt Date: 20190411
  Transmission Date: 20190711
  Serious: Yes (Life-Threatening, Hospitalization, Other)
  Sender: FDA-Public Use
  Company Number: BR-PFIZER INC-2019059577

PATIENT
  Age: 83 Year
  Sex: Male
  Weight: 65 kg

DRUGS (1)
  1. LORBRENA [Suspect]
     Active Substance: LORLATINIB
     Indication: NON-SMALL CELL LUNG CANCER METASTATIC
     Dosage: 75 MG, ONCE A DAY
     Route: 048
     Dates: start: 20180816, end: 20190202

REACTIONS (4)
  - Pulmonary embolism [Unknown]
  - Pulmonary fibrosis [Unknown]
  - Thrombosis [Unknown]
  - Pneumonitis [Unknown]
